FAERS Safety Report 10058359 (Version 1)
Quarter: 2014Q2

REPORT INFORMATION
  Report Type: Other
  Country: NZ (occurrence: NZ)
  Receive Date: 20140404
  Receipt Date: 20140404
  Transmission Date: 20141212
  Serious: Yes (Other)
  Sender: FDA-Public Use
  Company Number: NZ-ENDO PHARMACEUTICALS INC.-AVEE20140011

PATIENT
  Sex: Male

DRUGS (1)
  1. AVEED [Suspect]
     Indication: PRODUCT USED FOR UNKNOWN INDICATION
     Dosage: UNKNOWN
     Route: 030

REACTIONS (2)
  - Microembolism [Recovered/Resolved]
  - Injection site pain [Unknown]
